FAERS Safety Report 11364976 (Version 1)
Quarter: 2015Q3

REPORT INFORMATION
  Report Type: Spontaneous
  Country: US (occurrence: US)
  Receive Date: 20150811
  Receipt Date: 20150811
  Transmission Date: 20151125
  Serious: No
  Sender: FDA-Public Use
  Company Number: US-BIOGENIDEC-2015BI108826

PATIENT
  Sex: Female

DRUGS (1)
  1. TYSABRI [Suspect]
     Active Substance: NATALIZUMAB
     Indication: MULTIPLE SCLEROSIS
     Route: 042
     Dates: start: 20070822

REACTIONS (6)
  - Limb injury [Recovered/Resolved]
  - Stress fracture [Recovered/Resolved]
  - Gait disturbance [Unknown]
  - Joint injury [Recovered/Resolved]
  - Balance disorder [Unknown]
  - Memory impairment [Unknown]
